FAERS Safety Report 8120075-6 (Version None)
Quarter: 2012Q1

REPORT INFORMATION
  Report Type: 
  Country: None (occurrence: None)
  Receive Date: 20120207
  Receipt Date: 20120127
  Transmission Date: 20120608
  Serious: Yes (Life-Threatening, Hospitalization)
  Sender: FDA-Public Use
  Company Number: FR-PFIZER INC-2009230669

PATIENT
  Age: 59 Year
  Sex: Male
  Weight: 107 kg

DRUGS (11)
  1. METFORMIN HCL [Suspect]
     Dosage: 2550 MG, 1X/DAY
     Route: 048
     Dates: start: 19990101, end: 20090227
  2. AMLODIPINE BESYLATE [Concomitant]
  3. IKOREL [Concomitant]
  4. PREVISCAN [Concomitant]
  5. RAMIPRIL [Suspect]
     Route: 048
  6. ALDACTONE [Suspect]
     Route: 048
  7. LASIX [Concomitant]
     Route: 048
  8. CORDARONE [Concomitant]
  9. BISOPROLOL [Concomitant]
  10. ATORVASTATIN [Concomitant]
  11. ASPEGIC 325 [Concomitant]

REACTIONS (2)
  - LACTIC ACIDOSIS [None]
  - BRONCHITIS [None]
